FAERS Safety Report 7644671-5 (Version None)
Quarter: 2011Q3

REPORT INFORMATION
  Report Type: 
  Country: None (occurrence: None)
  Receive Date: 20110729
  Receipt Date: 20110719
  Transmission Date: 20111222
  Serious: Yes (Death, Life-Threatening, Hospitalization)
  Sender: FDA-Public Use
  Company Number: BE-ABBOTT-11P-013-0835531-02

PATIENT
  Sex: Female

DRUGS (27)
  1. TRAMADOL HCL [Concomitant]
     Indication: NEURALGIA
     Dates: start: 20090507
  2. OMEPRAZOLE [Concomitant]
     Indication: CROHN'S DISEASE
     Dates: start: 20090101, end: 20110522
  3. SULFASALAZINE [Concomitant]
     Indication: ARTHRALGIA
     Dates: start: 20100201, end: 20100923
  4. CLOPIDOGREL [Concomitant]
     Indication: THROMBOSIS PROPHYLAXIS
     Dates: start: 20110425, end: 20110626
  5. ZOLPIDEM [Concomitant]
     Indication: INSOMNIA
     Dates: end: 20110519
  6. EPSIPAM [Concomitant]
     Indication: FIBROMYALGIA
     Dates: start: 20080606
  7. CIPROFLOXACIN [Concomitant]
     Indication: VIITH NERVE PARALYSIS
     Dates: start: 20091201, end: 20100101
  8. FOLIC ACID [Concomitant]
     Indication: VITAMIN SUPPLEMENTATION
     Dates: start: 20100909, end: 20110626
  9. IBRUPROFEN [Concomitant]
     Indication: ARTHRALGIA
     Dates: start: 20100608
  10. SPIRIVA [Concomitant]
     Indication: BRONCHITIS
     Dates: start: 20090101
  11. DIAZEPAM [Concomitant]
     Indication: ANXIETY
     Dates: start: 20100101
  12. METHOTREXATE [Concomitant]
     Indication: CROHN'S DISEASE
     Dates: start: 20101118
  13. VOLTAPATCH [Concomitant]
     Indication: ARTHRALGIA
     Dates: start: 20101118
  14. ASPIRIN [Concomitant]
     Indication: THROMBOSIS PROPHYLAXIS
     Dates: start: 20110425, end: 20110626
  15. REDOMEX [Concomitant]
     Indication: NEURALGIA
     Dates: start: 20090101, end: 20110501
  16. TRAMADOL HCL [Concomitant]
     Indication: PAIN
     Dates: start: 20110423, end: 20110622
  17. ESCITALOPRAM [Concomitant]
     Indication: FIBROMYALGIA
     Dates: start: 20080101, end: 20110626
  18. MINOCYCLINE HCL [Concomitant]
     Indication: GROIN ABSCESS
  19. CYMBALTA [Concomitant]
     Indication: DEPRESSION
     Dates: start: 20100101
  20. VITAMIN B-12 [Concomitant]
     Indication: VITAMIN B12 DEFICIENCY
     Dates: start: 20110101, end: 20110620
  21. PRILOSEC [Concomitant]
     Indication: PROPHYLAXIS
     Dates: start: 20110525, end: 20110626
  22. NADROPARIN [Concomitant]
     Indication: PROPHYLAXIS
     Dates: start: 20110510, end: 20110525
  23. HUMIRA [Suspect]
     Indication: CROHN'S DISEASE
     Route: 058
     Dates: start: 20080916
  24. METHOTREXATE [Concomitant]
  25. PRILOSEC [Concomitant]
     Indication: GASTRIC DISORDER
     Dates: start: 20110523, end: 20110524
  26. MINOCYCLINE HCL [Concomitant]
     Indication: SKIN LESION
     Dates: start: 20090616, end: 20090922
  27. ACETAMINOPHEN [Concomitant]
     Indication: PAIN
     Dates: start: 20110423, end: 20110621

REACTIONS (1)
  - LUNG NEOPLASM MALIGNANT [None]
